FAERS Safety Report 25777848 (Version 1)
Quarter: 2025Q3

REPORT INFORMATION
  Report Type: Spontaneous
  Country: US (occurrence: US)
  Receive Date: 20250909
  Receipt Date: 20250909
  Transmission Date: 20251020
  Serious: Yes (Other)
  Sender: MAYNE
  Company Number: US-DUCHESNAY INC-2025MYN000501

PATIENT
  Sex: Female

DRUGS (1)
  1. ANNOVERA [Suspect]
     Active Substance: ETHINYL ESTRADIOL\SEGESTERONE ACETATE
     Indication: Product used for unknown indication
     Route: 067
     Dates: start: 20250723, end: 20250729

REACTIONS (6)
  - Suicidal ideation [Recovered/Resolved]
  - Paraesthesia oral [Recovered/Resolved]
  - Decreased appetite [Recovered/Resolved]
  - Insomnia [Recovering/Resolving]
  - Depression [Recovered/Resolved]
  - Withdrawal bleed [Not Recovered/Not Resolved]

NARRATIVE: CASE EVENT DATE: 20250701
